FAERS Safety Report 9203286 (Version 1)
Quarter: 2013Q2

REPORT INFORMATION
  Report Type: Spontaneous
  Country: JP (occurrence: JP)
  Receive Date: 20130402
  Receipt Date: 20130402
  Transmission Date: 20140414
  Serious: Yes (Other)
  Sender: FDA-Public Use
  Company Number: JP-JNJFOC-20130319121

PATIENT
  Age: 63 Year
  Sex: Female

DRUGS (11)
  1. REMINYL [Suspect]
     Indication: PRODUCT USED FOR UNKNOWN INDICATION
     Dosage: ORO DISPERSIBLE TABLETS
     Route: 048
     Dates: start: 20121128, end: 20130307
  2. LASIX [Concomitant]
     Route: 048
     Dates: start: 2012
  3. ALDACTONE A [Concomitant]
     Route: 048
     Dates: start: 2012
  4. LANSOPRAZOLE [Concomitant]
     Route: 048
     Dates: start: 2012
  5. MECOBALAMIN [Concomitant]
     Route: 048
     Dates: start: 2012
  6. PURSENNID [Concomitant]
     Route: 048
     Dates: start: 2012
  7. POLAPREZINC [Concomitant]
     Dosage: 15%
     Route: 048
     Dates: start: 201303
  8. LACTULOSE [Concomitant]
     Dosage: 65%
     Route: 048
     Dates: start: 201303
  9. MAGMITT [Concomitant]
     Dosage: 2 TABLETS
     Route: 048
     Dates: start: 201303
  10. ISOLEUCINE/LEUCINE/VALINE [Concomitant]
     Route: 048
     Dates: start: 2012
  11. ISOLEUCINE/LEUCINE/VALINE [Concomitant]
     Route: 048
     Dates: start: 2012

REACTIONS (1)
  - Occult blood [Recovered/Resolved]
